FAERS Safety Report 25889896 (Version 4)
Quarter: 2025Q4

REPORT INFORMATION
  Report Type: Report from Study
  Country: CN (occurrence: CN)
  Receive Date: 20251007
  Receipt Date: 20251216
  Transmission Date: 20260117
  Serious: Yes (Hospitalization)
  Sender: BAXTER
  Company Number: CN-BAXTER-2025BAX022160

PATIENT
  Age: 36 Year
  Sex: Female
  Weight: 65.6 kg

DRUGS (7)
  1. CYCLOPHOSPHAMIDE [Suspect]
     Active Substance: CYCLOPHOSPHAMIDE
     Indication: Follicular lymphoma
     Dosage: 1351.05 MG, EVERY 3 WK, CYCLE 1-6, DAY 1, OF EACH 21-DAY CYCLE
     Route: 042
     Dates: start: 20250731, end: 20250912
  2. EPCORITAMAB [Suspect]
     Active Substance: EPCORITAMAB
     Indication: Follicular lymphoma
     Dosage: DRUG NOT ADMINISTERED
     Route: 065
  3. RITUXIMAB [Suspect]
     Active Substance: RITUXIMAB
     Indication: Follicular lymphoma
     Dosage: 675.53 MG, EVERY 3 WK, CYCLE 1-8, DAY 1, OF EACH 21-DAY CYCLE
     Route: 042
     Dates: start: 20250801, end: 20250911
  4. VINCRISTINE [Suspect]
     Active Substance: VINCRISTINE
     Indication: Follicular lymphoma
     Dosage: 2 MG, EVERY 3 WK, DAY 1, OF EACH 21-DAY CYCLE
     Route: 042
     Dates: start: 20250731, end: 20250912
  5. DOXORUBICIN [Suspect]
     Active Substance: DOXORUBICIN
     Indication: Follicular lymphoma
     Dosage: 90.07 MG, EVERY 3 WK, CYCLE 1-6, DAY 1, OF EACH 21-DAY CYCLE
     Route: 042
     Dates: start: 20250731, end: 20250912
  6. PREDNISONE [Suspect]
     Active Substance: PREDNISONE
     Indication: Follicular lymphoma
     Dosage: 100 MG, QD, CYCLE 1-6, DAY 1-5, OF EACH 28 DAY CYCLE
     Route: 048
     Dates: end: 20250915
  7. ACYCLOVIR [Concomitant]
     Active Substance: ACYCLOVIR
     Indication: Infection prophylaxis
     Dosage: 0.4 G, BID (2/DAYS)
     Route: 065
     Dates: start: 20250731

REACTIONS (1)
  - Infectious pleural effusion [Recovered/Resolved]

NARRATIVE: CASE EVENT DATE: 20250920
